FAERS Safety Report 8935617 (Version 2)
Quarter: 2012Q4

REPORT INFORMATION
  Report Type: 
  Country: US (occurrence: US)
  Receive Date: 20121130
  Receipt Date: 20121227
  Transmission Date: 20130627
  Serious: Yes (Hospitalization, Other)
  Sender: FDA-Public Use
  Company Number: US-PFIZER INC-2012300094

PATIENT
  Age: 45 Year
  Sex: Female
  Weight: 89.8 kg

DRUGS (6)
  1. PRISTIQ [Suspect]
     Indication: NERVOUS SYSTEM DISORDER
     Dosage: 100 mg, daily
     Dates: start: 201208
  2. PRISTIQ [Suspect]
     Indication: ANXIETY
  3. HYDROCODONE [Concomitant]
     Indication: HERNIATED DISC
     Dosage: 7.5 mg, UNK
  4. ATENOLOL [Concomitant]
     Dosage: UNK, daily
  5. LORATADINE [Concomitant]
     Indication: SINUS DISORDER
     Dosage: 10 mg, daily
  6. LORATADINE [Concomitant]
     Indication: BREATHING DIFFICULT

REACTIONS (2)
  - Cerebrovascular accident [Unknown]
  - Off label use [Unknown]
